FAERS Safety Report 7007748-3 (Version None)
Quarter: 2010Q3

REPORT INFORMATION
  Report Type: 
  Country: None (occurrence: None)
  Receive Date: 20100920
  Receipt Date: 20100902
  Transmission Date: 20110219
  Serious: Yes (Hospitalization)
  Sender: FDA-Public Use
  Company Number: JPI-P-012105

PATIENT
  Age: 27 Year
  Sex: Male
  Weight: 93.441 kg

DRUGS (8)
  1. XYREM [Suspect]
     Indication: CATAPLEXY
     Dosage: 4.5 GM (2.25 GM, 2 IN 1 D) ORAL; 6 GM (3 GM, 2 IN 1 D) ORAL
     Route: 048
     Dates: start: 20030107
  2. XYREM [Suspect]
     Indication: HALLUCINATION
     Dosage: 4.5 GM (2.25 GM, 2 IN 1 D) ORAL; 6 GM (3 GM, 2 IN 1 D) ORAL
     Route: 048
     Dates: start: 20030107
  3. XYREM [Suspect]
     Indication: CATAPLEXY
     Dosage: 4.5 GM (2.25 GM, 2 IN 1 D) ORAL; 6 GM (3 GM, 2 IN 1 D) ORAL
     Route: 048
     Dates: start: 20030310
  4. XYREM [Suspect]
     Indication: HALLUCINATION
     Dosage: 4.5 GM (2.25 GM, 2 IN 1 D) ORAL; 6 GM (3 GM, 2 IN 1 D) ORAL
     Route: 048
     Dates: start: 20030310
  5. ARMODAFINIL [Concomitant]
  6. AMPHETAMINE DEXTROAMPHETAMINE MIXED SALTS [Concomitant]
  7. ESCITALOPRAM OXALATE [Concomitant]
  8. FLUTICASONE PROPIONATE [Concomitant]

REACTIONS (9)
  - BLOOD ALKALINE PHOSPHATASE INCREASED [None]
  - FOLLICULITIS [None]
  - LABORATORY TEST ABNORMAL [None]
  - LIP SWELLING [None]
  - SCAB [None]
  - SEDATION [None]
  - SKIN LACERATION [None]
  - VIRAL INFECTION [None]
  - VOMITING [None]
